FAERS Safety Report 22610946 (Version 1)
Quarter: 2023Q2

REPORT INFORMATION
  Report Type: Spontaneous
  Country: BR (occurrence: BR)
  Receive Date: 20230616
  Receipt Date: 20230616
  Transmission Date: 20230721
  Serious: Yes (Hospitalization, Other)
  Sender: FDA-Public Use
  Company Number: BR-SUN PHARMACEUTICAL INDUSTRIES LTD-2023R1-394927

PATIENT
  Age: 49 Year
  Sex: Male
  Weight: 49 kg

DRUGS (5)
  1. AMPHOTERICIN B [Suspect]
     Active Substance: AMPHOTERICIN B
     Indication: Ototoxicity
     Dosage: 50 MILLIGRAM PER MILLILITRE, QD
     Route: 042
  2. ISONIAZID [Suspect]
     Active Substance: ISONIAZID
     Indication: Cryptococcosis
     Dosage: 100 MILLIGRAM PER MILLILITRE, QD
     Route: 065
  3. RIFAMPIN [Suspect]
     Active Substance: RIFAMPIN
     Indication: Cryptococcosis
     Dosage: 20 MILLIGRAM PER MILLILITRE
     Route: 065
  4. ETHAMBUTOL [Concomitant]
     Active Substance: ETHAMBUTOL HYDROCHLORIDE
     Indication: Leukopenia
     Dosage: 100 MILLIGRAM PER MILLILITRE, QD
     Route: 065
  5. ETHAMBUTOL [Concomitant]
     Active Substance: ETHAMBUTOL HYDROCHLORIDE
     Indication: Immune thrombocytopenia

REACTIONS (6)
  - Metabolic acidosis [Unknown]
  - Leukopenia [Unknown]
  - Thrombocytopenia [Unknown]
  - Optic neuritis [Unknown]
  - Delirium [Unknown]
  - Loss of consciousness [Unknown]
